FAERS Safety Report 9118375 (Version 1)
Quarter: 2013Q1

REPORT INFORMATION
  Report Type: Spontaneous
  Country: US (occurrence: None)
  Receive Date: 20130221
  Receipt Date: 20130221
  Transmission Date: 20140127
  Serious: Yes (Hospitalization, Other)
  Sender: FDA-Public Use
  Company Number: None

PATIENT
  Age: 20 Year
  Sex: Female

DRUGS (2)
  1. APRI 0.15/0.03 [Suspect]
     Indication: MENSTRUATION IRREGULAR
     Route: 048
     Dates: start: 20111228, end: 20130214
  2. RECLIPSEN 0.15/0.03 [Concomitant]

REACTIONS (1)
  - Pulmonary thrombosis [None]
